FAERS Safety Report 24678301 (Version 1)
Quarter: 2024Q4

REPORT INFORMATION
  Report Type: Spontaneous
  Country: AR (occurrence: AR)
  Receive Date: 20241129
  Receipt Date: 20241129
  Transmission Date: 20250115
  Serious: Yes (Other)
  Sender: STRIDES
  Company Number: AR-STRIDES ARCOLAB LIMITED-2019SP008005

PATIENT
  Age: 40 Year
  Sex: Female

DRUGS (7)
  1. CABERGOLINE [Suspect]
     Active Substance: CABERGOLINE
     Indication: Ectopic ACTH syndrome
     Dosage: 3.5 MILLIGRAM, ONCE A WEEK
     Route: 065
  2. CABERGOLINE [Suspect]
     Active Substance: CABERGOLINE
     Dosage: UNK, REINITIATED
     Route: 065
  3. OCTREOTIDE [Suspect]
     Active Substance: OCTREOTIDE
     Indication: Ectopic ACTH syndrome
     Dosage: 20 MILLIGRAM, ONCE A MONTH
     Route: 030
  4. KETOCONAZOLE [Concomitant]
     Active Substance: KETOCONAZOLE
     Indication: Ectopic ACTH syndrome
     Dosage: 800 MILLIGRAM, QD
     Route: 065
  5. AMINOGLUTETHIMIDE [Concomitant]
     Active Substance: AMINOGLUTETHIMIDE
     Indication: Ectopic ACTH syndrome
     Dosage: 1500 MILLIGRAM, QD
     Route: 065
  6. HYDROCORTISONE [Concomitant]
     Active Substance: HYDROCORTISONE
     Indication: Ectopic ACTH syndrome
     Dosage: UNK
     Route: 065
  7. FLUDROCORTISONE [Concomitant]
     Active Substance: FLUDROCORTISONE
     Indication: Ectopic ACTH syndrome
     Dosage: UNK
     Route: 065

REACTIONS (3)
  - Rebound effect [Recovered/Resolved]
  - Hyperadrenocorticism [Recovered/Resolved]
  - Off label use [Unknown]
